FAERS Safety Report 5127292-8 (Version None)
Quarter: 2006Q4

REPORT INFORMATION
  Report Type: 
  Country: None (occurrence: None)
  Receive Date: 20061010
  Receipt Date: 20060710
  Transmission Date: 20070319
  Serious: Yes (Other)
  Sender: FDA-Public Use
  Company Number: CHNY2006SE02022

PATIENT
  Sex: Female

DRUGS (1)
  1. NICOTINELL GUM (NCH)(NICOTINE) CHEWABLE GUM [Suspect]
     Indication: SMOKING CESSATION THERAPY
     Dosage: 2 MG, CHEWED

REACTIONS (1)
  - ORAL FUNGAL INFECTION [None]
